FAERS Safety Report 21804904 (Version 1)
Quarter: 2023Q1

REPORT INFORMATION
  Report Type: Spontaneous
  Country: TR (occurrence: TR)
  Receive Date: 20230102
  Receipt Date: 20230102
  Transmission Date: 20230418
  Serious: No
  Sender: FDA-Public Use
  Company Number: TR-PADAGIS-2022PAD01189

PATIENT

DRUGS (2)
  1. IBUPROFEN [Suspect]
     Active Substance: IBUPROFEN
     Indication: Symptomatic treatment
     Dosage: 600 MG, TID (8 HOURS PER DAY)
     Route: 065
  2. PROPRANOLOL [Suspect]
     Active Substance: PROPRANOLOL HYDROCHLORIDE
     Indication: Symptomatic treatment
     Dosage: 20 MG, QID (6 HOURS PER DAY)
     Route: 065

REACTIONS (1)
  - Drug ineffective [Unknown]
